FAERS Safety Report 18173619 (Version 1)
Quarter: 2020Q3

REPORT INFORMATION
  Report Type: Spontaneous
  Country: DE (occurrence: DE)
  Receive Date: 20200820
  Receipt Date: 20200820
  Transmission Date: 20201103
  Serious: Yes (Hospitalization)
  Sender: FDA-Public Use
  Company Number: DE-TEVA-2020-DE-1815610

PATIENT
  Age: 82 Year
  Sex: Male

DRUGS (13)
  1. LEVOTHYROXIN?NATRIUM [Concomitant]
     Active Substance: LEVOTHYROXINE SODIUM
     Dosage: 50 MICROGRAM DAILY; 1?0?0?0
  2. METOPROLOL. [Concomitant]
     Active Substance: METOPROLOL
     Dosage: 95 MILLIGRAM DAILY; 1?0?1?0
  3. TORASEMID [Concomitant]
     Active Substance: TORSEMIDE
     Dosage: 10 MILLIGRAM DAILY; 1?0?0?0
  4. PANTOPRAZOL [Concomitant]
     Active Substance: PANTOPRAZOLE SODIUM
     Dosage: 40 MILLIGRAM DAILY;  1?0?0?0
  5. TAMSULOSIN [Concomitant]
     Active Substance: TAMSULOSIN
     Dosage: .4 MILLIGRAM DAILY; 0?0?1?0
  6. PANKREATIN MIKRO?RATIOPHARM 20000 [Concomitant]
     Dosage: 3 DOSAGE FORMS DAILY; 20000 IE, 1?1?1?0
  7. ALLOPURINOL. [Concomitant]
     Active Substance: ALLOPURINOL
     Dosage: 100 MILLIGRAM DAILY; 1?0?0?0
  8. TIOTROPIUMBROMID [Concomitant]
     Dosage: 2 DOSAGE FORMS DAILY; 18 UG, 2?0?0?0
     Route: 055
  9. GLIMEPIRID [Concomitant]
     Active Substance: GLIMEPIRIDE
     Dosage: 2 MILLIGRAM DAILY; 1?0?1?0
  10. LEVOFLOXACIN. [Suspect]
     Active Substance: LEVOFLOXACIN
     Indication: PNEUMONIA
     Dosage: 500 MG
     Dates: end: 20200702
  11. METAMIZOL [Concomitant]
     Active Substance: METAMIZOLE SODIUM
     Dosage: 500 MG, AS NEEDED
  12. FLUTICASON/SALMETEROL [Concomitant]
     Dosage: 2 DOSAGE FORMS DAILY; 444|50 UG, 1?0?1?0
     Route: 055
  13. EMPAGLIFLOZIN [Concomitant]
     Active Substance: EMPAGLIFLOZIN
     Dosage: 2 DOSAGE FORMS DAILY; 10 MG, 2?0?0?0

REACTIONS (3)
  - Erythema [Unknown]
  - Drug hypersensitivity [Unknown]
  - Hot flush [Unknown]
